FAERS Safety Report 6098312-1 (Version None)
Quarter: 2009Q1

REPORT INFORMATION
  Report Type: 
  Country: None (occurrence: None)
  Receive Date: 20090302
  Receipt Date: 20090216
  Transmission Date: 20090719
  Serious: Yes (Other)
  Sender: FDA-Public Use
  Company Number: CZ-PFIZER INC-2009157961

PATIENT

DRUGS (4)
  1. DOSTINEX [Suspect]
     Dosage: .25 MG, WEEKLY
     Route: 048
  2. ALL OTHER THERAPEUTIC PRODUCTS [Concomitant]
     Dosage: UNK
     Route: 062
  3. SYMBICORT TURBOHALER [Concomitant]
     Dosage: UNK
  4. VENTOLIN [Concomitant]
     Dosage: UNK

REACTIONS (2)
  - BLOOD PROLACTIN INCREASED [None]
  - HYPERKINETIC HEART SYNDROME [None]
